FAERS Safety Report 9354276 (Version 1)
Quarter: 2013Q2

REPORT INFORMATION
  Report Type: Report from Study
  Country: TR (occurrence: TR)
  Receive Date: 20130618
  Receipt Date: 20130618
  Transmission Date: 20140414
  Serious: Yes (Hospitalization)
  Sender: FDA-Public Use
  Company Number: TR-ACTELION-A-CH2013-84411

PATIENT
  Age: 79 Year
  Sex: Female

DRUGS (1)
  1. TRACLEER [Suspect]
     Indication: PRODUCT USED FOR UNKNOWN INDICATION
     Dosage: 125 MG, BID
     Route: 048

REACTIONS (4)
  - Respiratory failure [Unknown]
  - Dyspnoea [Unknown]
  - Liver function test abnormal [Unknown]
  - Haemoglobin abnormal [Unknown]
